FAERS Safety Report 10413081 (Version 5)
Quarter: 2015Q3

REPORT INFORMATION
  Report Type: Report from Study
  Country: US (occurrence: US)
  Receive Date: 20140827
  Receipt Date: 20150818
  Transmission Date: 20151125
  Serious: Yes (Hospitalization, Other)
  Sender: FDA-Public Use
  Company Number: US-GILEAD-2014-0113358

PATIENT
  Age: 73 Year
  Sex: Female

DRUGS (6)
  1. LOSARTAN. [Concomitant]
     Active Substance: LOSARTAN
  2. METOPROLOL [Concomitant]
     Active Substance: METOPROLOL
  3. AMBRISENTAN [Suspect]
     Active Substance: AMBRISENTAN
     Indication: PULMONARY ARTERIAL HYPERTENSION
     Dosage: 5 MG, QD
     Route: 065
     Dates: start: 20140627
  4. FLECAINIDE [Concomitant]
     Active Substance: FLECAINIDE
  5. FLUTICASONE [Concomitant]
     Active Substance: FLUTICASONE\FLUTICASONE PROPIONATE
  6. WARFARIN [Concomitant]
     Active Substance: WARFARIN

REACTIONS (3)
  - Fluid retention [Unknown]
  - Cardiac failure [Unknown]
  - Oedema peripheral [Unknown]
